FAERS Safety Report 9086069 (Version 1)
Quarter: 2013Q1

REPORT INFORMATION
  Report Type: Report from Study
  Country: US (occurrence: US)
  Receive Date: 20130130
  Receipt Date: 20130130
  Transmission Date: 20140127
  Serious: No
  Sender: FDA-Public Use
  Company Number: US-ABBOTT-12P-163-0986061-00

PATIENT
  Age: 52 Year
  Sex: Female

DRUGS (4)
  1. HUMIRA [Suspect]
     Indication: CROHN^S DISEASE
     Dosage: LOADING DOSE
     Dates: start: 20120906
  2. PREDNISONE [Concomitant]
     Indication: CROHN^S DISEASE
     Route: 048
  3. 6MP [Concomitant]
     Indication: CROHN^S DISEASE
     Route: 048
  4. BENTYL [Concomitant]
     Indication: CROHN^S DISEASE
     Route: 048

REACTIONS (2)
  - Device malfunction [Unknown]
  - Drug dose omission [Unknown]
